FAERS Safety Report 15901909 (Version 1)
Quarter: 2019Q1

REPORT INFORMATION
  Report Type: Spontaneous
  Country: US (occurrence: US)
  Receive Date: 20190201
  Receipt Date: 20190201
  Transmission Date: 20190417
  Serious: Yes (Other)
  Sender: FDA-Public Use
  Company Number: US-SUNOVION-2019SUN000324

PATIENT

DRUGS (1)
  1. LATUDA [Suspect]
     Active Substance: LURASIDONE HYDROCHLORIDE
     Dosage: UNK
     Route: 048

REACTIONS (8)
  - Joint dislocation [Unknown]
  - Gait disturbance [Unknown]
  - Vomiting [Unknown]
  - Feeding disorder [Unknown]
  - Tardive dyskinesia [Unknown]
  - Muscle spasms [Unknown]
  - Morbid thoughts [Unknown]
  - Haematemesis [Unknown]
